FAERS Safety Report 9911264 (Version 1)
Quarter: 2014Q1

REPORT INFORMATION
  Report Type: Spontaneous
  Country: US (occurrence: US)
  Receive Date: 20140219
  Receipt Date: 20140219
  Transmission Date: 20141002
  Serious: Yes (Hospitalization, Other)
  Sender: FDA-Public Use
  Company Number: US-ROXANE LABORATORIES, INC.-2014-RO-00228RO

PATIENT
  Age: 68 Year
  Sex: Male

DRUGS (4)
  1. AZATHIOPRINE [Suspect]
     Indication: CROHN^S DISEASE
     Dosage: 75 MG
  2. PREDNISONE [Suspect]
     Indication: CROHN^S DISEASE
     Dosage: 40 MG
  3. PREDNISONE [Suspect]
     Dosage: 30 MG
  4. PREDNISONE [Suspect]
     Dosage: 20 MG

REACTIONS (4)
  - Drug hypersensitivity [Recovered/Resolved]
  - Leukocytosis [Recovered/Resolved]
  - Conjunctivitis [Unknown]
  - Epidural lipomatosis [Unknown]
